FAERS Safety Report 16634580 (Version 2)
Quarter: 2019Q3

REPORT INFORMATION
  Report Type: Report from Study
  Country: US (occurrence: US)
  Receive Date: 20190726
  Receipt Date: 20190802
  Transmission Date: 20191004
  Serious: Yes (Hospitalization)
  Sender: FDA-Public Use
  Company Number: US-ROCHE-2359333

PATIENT
  Age: 57 Year
  Sex: Female
  Weight: 105.1 kg

DRUGS (1)
  1. ATEZOLIZUMAB. [Suspect]
     Active Substance: ATEZOLIZUMAB
     Indication: OVARIAN EPITHELIAL CANCER
     Dosage: DATE OF LAST DOSE OF ATEZOLIZUMAB PRIOR TO ONSET OF SAE THROMBOEMBOLIC EVENT: 25/JUN/2019
     Route: 041
     Dates: start: 20190510

REACTIONS (1)
  - Embolism [Recovered/Resolved]

NARRATIVE: CASE EVENT DATE: 20190716
